FAERS Safety Report 6079415-4 (Version None)
Quarter: 2009Q1

REPORT INFORMATION
  Report Type: 
  Country: None (occurrence: None)
  Receive Date: 20090216
  Receipt Date: 20090203
  Transmission Date: 20090719
  Serious: Yes (Hospitalization, Other)
  Sender: FDA-Public Use
  Company Number: US-ELI_LILLY_AND_COMPANY-US200902000590

PATIENT
  Sex: Female

DRUGS (1)
  1. FORTEO [Suspect]
     Dosage: UNK, UNK
     Dates: start: 20081201, end: 20090101

REACTIONS (4)
  - DEHYDRATION [None]
  - DIARRHOEA [None]
  - VIRAL INFECTION [None]
  - VOMITING [None]
